FAERS Safety Report 11883573 (Version 1)
Quarter: 2015Q4

REPORT INFORMATION
  Report Type: Spontaneous
  Country: DE (occurrence: DE)
  Receive Date: 20151231
  Receipt Date: 20151231
  Transmission Date: 20160305
  Serious: Yes (Death, Hospitalization, Other)
  Sender: FDA-Public Use
  Company Number: PHHY2015DE171193

PATIENT
  Age: 35 Year
  Sex: Female

DRUGS (8)
  1. CICLOSPORIN [Suspect]
     Active Substance: CYCLOSPORINE
     Indication: STEM CELL TRANSPLANT
     Route: 065
  2. CICLOSPORIN [Suspect]
     Active Substance: CYCLOSPORINE
     Indication: IMMUNOSUPPRESSION
  3. TACROLIMUS. [Suspect]
     Active Substance: TACROLIMUS
     Indication: STEM CELL TRANSPLANT
     Route: 065
  4. MYCOPHENOLATE MOFETIL. [Suspect]
     Active Substance: MYCOPHENOLATE MOFETIL
     Indication: STEM CELL TRANSPLANT
     Route: 065
  5. PREDNISOLONE. [Suspect]
     Active Substance: PREDNISOLONE
     Indication: IMMUNOSUPPRESSION
  6. PREDNISOLONE. [Suspect]
     Active Substance: PREDNISOLONE
     Indication: STEM CELL TRANSPLANT
     Dosage: 2-5 MG/KG, UNK
     Route: 065
  7. TACROLIMUS. [Suspect]
     Active Substance: TACROLIMUS
     Indication: IMMUNOSUPPRESSION
  8. MYCOPHENOLATE MOFETIL. [Suspect]
     Active Substance: MYCOPHENOLATE MOFETIL
     Indication: IMMUNOSUPPRESSION

REACTIONS (7)
  - Cytomegalovirus colitis [Fatal]
  - Cytomegalovirus viraemia [Unknown]
  - Cytomegalovirus infection [Unknown]
  - Nephropathy toxic [Unknown]
  - Diarrhoea [Fatal]
  - Pancytopenia [Fatal]
  - Graft versus host disease in gastrointestinal tract [Fatal]
